FAERS Safety Report 12233467 (Version 2)
Quarter: 2016Q2

REPORT INFORMATION
  Report Type: Spontaneous
  Country: US (occurrence: US)
  Receive Date: 20160404
  Receipt Date: 20160526
  Transmission Date: 20160815
  Serious: Yes (Hospitalization)
  Sender: FDA-Public Use
  Company Number: US-AUROBINDO-AUR-APL-2016-04090

PATIENT
  Age: 20 Year
  Sex: Female

DRUGS (2)
  1. SERTRALINE 50MG [Suspect]
     Active Substance: SERTRALINE HYDROCHLORIDE
     Indication: MAJOR DEPRESSION
     Dosage: 50 MG, DAILY
     Route: 065
  2. SERTRALINE 50MG [Suspect]
     Active Substance: SERTRALINE HYDROCHLORIDE
     Dosage: 100 MG, DAILY
     Route: 065

REACTIONS (16)
  - Sexual dysfunction [Recovered/Resolved]
  - Psychomotor hyperactivity [Recovered/Resolved]
  - Logorrhoea [Recovered/Resolved]
  - Decreased appetite [Recovered/Resolved]
  - Bipolar I disorder [Recovered/Resolved]
  - Feeling abnormal [Recovered/Resolved]
  - Speech disorder [Recovered/Resolved]
  - Impulsive behaviour [Recovered/Resolved]
  - Energy increased [Recovered/Resolved]
  - Psychotic behaviour [Recovered/Resolved]
  - Irritability [Recovered/Resolved]
  - Grandiosity [Recovered/Resolved]
  - Mania [Recovered/Resolved]
  - Poor quality sleep [Recovered/Resolved]
  - Psychotic disorder [Recovered/Resolved]
  - Paranoia [Recovered/Resolved]
